FAERS Safety Report 4901063-7 (Version None)
Quarter: 2006Q1

REPORT INFORMATION
  Report Type: 
  Country: None (occurrence: None)
  Receive Date: 20060203
  Receipt Date: 20050622
  Transmission Date: 20060701
  Serious: Yes (Life-Threatening, Hospitalization)
  Sender: FDA-Public Use
  Company Number: CA-MERCK-0506CAN00141

PATIENT
  Age: 75 Year
  Sex: Male

DRUGS (4)
  1. PROSCAR [Suspect]
     Indication: BENIGN PROSTATIC HYPERPLASIA
     Route: 048
     Dates: start: 20041206, end: 20050101
  2. PROSCAR [Suspect]
     Route: 048
     Dates: start: 20050101, end: 20051205
  3. VALSARTAN [Concomitant]
     Indication: HYPERTENSION
     Route: 065
     Dates: start: 20050217, end: 20051102
  4. IBUPROFEN [Concomitant]
     Indication: PAIN IN EXTREMITY
     Route: 065
     Dates: start: 20030601, end: 20051102

REACTIONS (6)
  - CARDIOVASCULAR DISORDER [None]
  - CHEST PAIN [None]
  - DILATATION ATRIAL [None]
  - ELECTROCARDIOGRAM ST SEGMENT DEPRESSION [None]
  - HYPERCHOLESTEROLAEMIA [None]
  - INFLUENZA [None]
